FAERS Safety Report 7494264-8 (Version None)
Quarter: 2011Q2

REPORT INFORMATION
  Report Type: 
  Country: None (occurrence: None)
  Receive Date: 20110520
  Receipt Date: 20110516
  Transmission Date: 20111010
  Serious: Yes (Hospitalization)
  Sender: FDA-Public Use
  Company Number: FR-SANOFI-AVENTIS-2011SA030134

PATIENT
  Age: 72 Year
  Sex: Female

DRUGS (5)
  1. TRASTUZUMAB [Suspect]
     Indication: BREAST CANCER
     Dates: start: 20110427, end: 20110427
  2. CORTICOSTEROIDS [Concomitant]
     Indication: PREMEDICATION
     Dates: start: 20110401, end: 20110401
  3. TAXOTERE [Suspect]
     Indication: BREAST CANCER
     Dates: start: 20110427, end: 20110427
  4. CYCLOPHOSPHAMIDE [Suspect]
     Indication: BREAST CANCER
     Dates: start: 20110427, end: 20110427
  5. LEVOTHYROXINE SODIUM [Concomitant]

REACTIONS (4)
  - THROMBOCYTOPENIC PURPURA [None]
  - PETECHIAE [None]
  - EPISTAXIS [None]
  - PLATELET COUNT DECREASED [None]
